FAERS Safety Report 18803596 (Version 2)
Quarter: 2022Q1

REPORT INFORMATION
  Report Type: Spontaneous
  Country: US (occurrence: US)
  Receive Date: 20210129
  Receipt Date: 20220223
  Transmission Date: 20220423
  Serious: No
  Sender: FDA-Public Use
  Company Number: US-UCBSA-2020008849

PATIENT

DRUGS (2)
  1. LEVETIRACETAM [Interacting]
     Active Substance: LEVETIRACETAM
     Indication: Epilepsy
     Dosage: UNKNOWN DOSE
  2. CANNABIDIOL [Interacting]
     Active Substance: CANNABIDIOL
     Indication: Epilepsy
     Dosage: UNKNOWN DOSE
     Route: 048

REACTIONS (1)
  - Drug interaction [Unknown]
